FAERS Safety Report 11774955 (Version 4)
Quarter: 2016Q1

REPORT INFORMATION
  Report Type: Spontaneous
  Country: None (occurrence: US)
  Receive Date: 20151124
  Receipt Date: 20160103
  Transmission Date: 20160525
  Serious: No
  Sender: FDA-Public Use
  Company Number: US-RARE DISEASE THERAPEUTICS, INC.-1044593

PATIENT
  Age: 7 Year
  Sex: Male
  Weight: 26.3 kg

DRUGS (2)
  1. CYSTADANE [Suspect]
     Active Substance: BETAINE
     Route: 048
     Dates: start: 201411
  2. CYSTADANE [Suspect]
     Active Substance: BETAINE
     Indication: CYSTATHIONINE BETA-SYNTHASE DEFICIENCY
     Route: 048
     Dates: start: 201304, end: 201411

REACTIONS (2)
  - Overdose [Unknown]
  - Influenza [Unknown]

NARRATIVE: CASE EVENT DATE: 20150416
